FAERS Safety Report 5744685-6 (Version None)
Quarter: 2008Q2

REPORT INFORMATION
  Report Type: 
  Country: None (occurrence: None)
  Receive Date: 20080516
  Receipt Date: 20080502
  Transmission Date: 20081010
  Serious: Yes (Other)
  Sender: FDA-Public Use
  Company Number: 2007US001022

PATIENT
  Age: 74 Year
  Sex: Female
  Weight: 90.7 kg

DRUGS (1)
  1. AMEVIVE [Suspect]
     Indication: PSORIASIS
     Dosage: INTRAMUSCULAR
     Route: 030
     Dates: start: 20050422

REACTIONS (1)
  - TRANSIENT ISCHAEMIC ATTACK [None]
